FAERS Safety Report 7979673-2 (Version None)
Quarter: 2011Q4

REPORT INFORMATION
  Report Type: 
  Country: None (occurrence: None)
  Receive Date: 20111214
  Receipt Date: 20111129
  Transmission Date: 20120403
  Serious: Yes (Hospitalization, Other)
  Sender: FDA-Public Use
  Company Number: FR-WATSON-2011-21220

PATIENT
  Age: 39 Year
  Sex: Female

DRUGS (8)
  1. CEFTRIAXONE [Suspect]
     Indication: OSTEITIS
     Route: 065
  2. GENTAMICIN [Suspect]
     Indication: OSTEITIS
     Route: 065
  3. TRAMADOL HCL [Suspect]
     Indication: OSTEITIS
  4. PREDNISONE TAB [Suspect]
     Indication: DRUG RASH WITH EOSINOPHILIA AND SYSTEMIC SYMPTOMS
     Dosage: 1 MG/KG, DAILY
     Route: 048
  5. PREDNISONE TAB [Suspect]
     Dosage: IV BOLUS PREDNISONE FOLLOWED BY ORAL PREDNISONE 30 MG/DAYX10 MONTHS
     Route: 050
  6. NEFOPAM [Suspect]
     Indication: OSTEITIS
     Route: 065
  7. VANCOMYCIN HYCHLORIDE [Suspect]
     Indication: OSTEITIS
     Route: 065
  8. PREDNISONE TAB [Suspect]
     Dosage: 10 MG, DAILY (3 MONTHS AFTER1MG/KG/DAY)
     Route: 048

REACTIONS (3)
  - BASEDOW'S DISEASE [None]
  - HUMAN HERPES VIRUS 6 SEROLOGY POSITIVE [None]
  - DRUG RASH WITH EOSINOPHILIA AND SYSTEMIC SYMPTOMS [None]
